FAERS Safety Report 7159018 (Version 3)
Quarter: 2014Q1

REPORT INFORMATION
  Report Type: Spontaneous
  Country: US (occurrence: US)
  Receive Date: 20091027
  Receipt Date: 20140131
  Transmission Date: 20141002
  Serious: Yes (Life-Threatening, Other)
  Sender: FDA-Public Use
  Company Number: US-BAYER-200936513NA

PATIENT
  Age: 18 Year
  Sex: Female

DRUGS (6)
  1. YAZ [Suspect]
  2. YASMIN [Suspect]
  3. OCELLA [Suspect]
  4. GIANVI [Suspect]
  5. DONNATAL [Concomitant]
  6. AMOXICILLIN [Concomitant]
     Dosage: 500 MG, UNK

REACTIONS (7)
  - Cholecystectomy [Unknown]
  - Cholecystitis acute [None]
  - Injury [Unknown]
  - Pain [Unknown]
  - Anxiety [None]
  - Anhedonia [None]
  - Fear of disease [None]
